FAERS Safety Report 7369376-X (Version None)
Quarter: 2011Q1

REPORT INFORMATION
  Report Type: 
  Country: None (occurrence: None)
  Receive Date: 20110323
  Receipt Date: 20110321
  Transmission Date: 20110831
  Serious: Yes (Congenital Anomaly)
  Sender: FDA-Public Use
  Company Number: CA-JNJFOC-2011004041

PATIENT

DRUGS (2)
  1. CETIRIZINE HYDROCHLORIDE [Suspect]
     Indication: PRODUCT USED FOR UNKNOWN INDICATION
     Route: 064
  2. CETIRIZINE HYDROCHLORIDE [Suspect]
     Route: 064

REACTIONS (2)
  - FOETAL MALFORMATION [None]
  - DRUG EXPOSURE DURING PREGNANCY [None]
